FAERS Safety Report 7824023-5 (Version None)
Quarter: 2011Q4

REPORT INFORMATION
  Report Type: 
  Country: None (occurrence: None)
  Receive Date: 20111018
  Receipt Date: 20111018
  Transmission Date: 20120403
  Serious: Yes (Hospitalization)
  Sender: FDA-Public Use
  Company Number: None

PATIENT
  Sex: Female
  Weight: 76 kg

DRUGS (2)
  1. TOPOTECAN [Suspect]
     Dosage: 4.2 MG
     Dates: end: 20110812
  2. PACLITAXEL [Suspect]
     Dosage: 325 MG
     Dates: end: 20110810

REACTIONS (2)
  - VOMITING [None]
  - DEVICE RELATED INFECTION [None]
